FAERS Safety Report 21243489 (Version 1)
Quarter: 2022Q3

REPORT INFORMATION
  Report Type: Spontaneous
  Country: JP (occurrence: JP)
  Receive Date: 20220823
  Receipt Date: 20220823
  Transmission Date: 20221027
  Serious: Yes (Death, Life-Threatening, Other)
  Sender: FDA-Public Use
  Company Number: JP-MLMSERVICE-20220805-3719963-1

PATIENT
  Age: 57 Year
  Sex: Male

DRUGS (7)
  1. CISPLATIN [Suspect]
     Active Substance: CISPLATIN
     Indication: Gastric cancer stage IV
     Dosage: CUMULATIVE DOSE: 8 CYCLICAL
  2. OXALIPLATIN [Suspect]
     Active Substance: OXALIPLATIN
     Indication: Gastric cancer stage IV
  3. TIPIRACIL HYDROCHLORIDE [Concomitant]
     Active Substance: TIPIRACIL HYDROCHLORIDE
     Indication: Gastric cancer stage IV
  4. CAPECITABINE [Concomitant]
     Active Substance: CAPECITABINE
     Indication: Metastases to lymph nodes
  5. GIMERACIL\OTERACIL\TEGAFUR [Concomitant]
     Active Substance: GIMERACIL\OTERACIL\TEGAFUR
     Indication: Metastases to lymph nodes
     Dosage: 8 CYCLES
  6. IRINOTECAN [Concomitant]
     Active Substance: IRINOTECAN
     Indication: Gastric cancer stage IV
  7. TRIFLURIDINE [Concomitant]
     Active Substance: TRIFLURIDINE
     Indication: Gastric cancer stage IV

REACTIONS (2)
  - Gene mutation [Fatal]
  - Clonal haematopoiesis [Fatal]
